FAERS Safety Report 16899678 (Version 1)
Quarter: 2019Q4

REPORT INFORMATION
  Report Type: Spontaneous
  Country: US (occurrence: US)
  Receive Date: 20191008
  Receipt Date: 20191008
  Transmission Date: 20200122
  Serious: No
  Sender: FDA-Public Use
  Company Number: None

PATIENT

DRUGS (2)
  1. BENEFIBER [Suspect]
     Active Substance: STARCH, WHEAT
  2. LINZESS [Suspect]
     Active Substance: LINACLOTIDE

REACTIONS (1)
  - Drug ineffective [None]
